FAERS Safety Report 25492331 (Version 1)
Quarter: 2025Q2

REPORT INFORMATION
  Report Type: Spontaneous
  Country: JP (occurrence: JP)
  Receive Date: 20250630
  Receipt Date: 20250630
  Transmission Date: 20250717
  Serious: Yes (Other)
  Sender: GLAXOSMITHKLINE
  Company Number: JP-GSKJP-JP2025JPN079035AA

PATIENT
  Age: 90 Year

DRUGS (2)
  1. DAPRODUSTAT [Suspect]
     Active Substance: DAPRODUSTAT
  2. VADADUSTAT [Concomitant]
     Active Substance: VADADUSTAT

REACTIONS (2)
  - Renal impairment [Unknown]
  - Haemoglobin increased [Unknown]
